FAERS Safety Report 8192080-5 (Version None)
Quarter: 2012Q1

REPORT INFORMATION
  Report Type: 
  Country: None (occurrence: None)
  Receive Date: 20120307
  Receipt Date: 20120227
  Transmission Date: 20120608
  Serious: Yes (Other)
  Sender: FDA-Public Use
  Company Number: US-B.I. PHARMACEUTICALS,INC./RIDGEFIELD-2012-BP-04321BP

PATIENT
  Sex: Male
  Weight: 1.41 kg

DRUGS (3)
  1. ZIDOVUDINE [Concomitant]
     Indication: MATERNAL EXPOSURE DURING PREGNANCY
     Dosage: 2000 MG
     Route: 064
     Dates: start: 20111125
  2. TRUVADA [Concomitant]
     Indication: MATERNAL EXPOSURE DURING PREGNANCY
     Route: 064
  3. VIRAMUNE [Suspect]
     Indication: MATERNAL EXPOSURE DURING PREGNANCY
     Dosage: 400 MG
     Route: 064

REACTIONS (2)
  - LOW BIRTH WEIGHT BABY [None]
  - PREMATURE BABY [None]
